FAERS Safety Report 4369598-6 (Version None)
Quarter: 2004Q2

REPORT INFORMATION
  Report Type: 
  Country: None (occurrence: None)
  Receive Date: 20040603
  Receipt Date: 20040524
  Transmission Date: 20050107
  Serious: Yes (Life-Threatening, Hospitalization)
  Sender: FDA-Public Use
  Company Number: ES-BRISTOL-MYERS SQUIBB COMPANY-12596821

PATIENT
  Age: 51 Year
  Sex: Female

DRUGS (3)
  1. MAXIPIME [Suspect]
     Indication: FEBRILE NEUTROPENIA
     Route: 042
     Dates: start: 20040512, end: 20040517
  2. FLUCONAZOLE [Suspect]
     Indication: FEBRILE NEUTROPENIA
     Route: 042
     Dates: start: 20040512, end: 20040517
  3. ADRIAMYCIN PFS [Concomitant]
     Indication: BREAST CANCER

REACTIONS (2)
  - ENCEPHALOPATHY [None]
  - LIVER DISORDER [None]
